FAERS Safety Report 15001064 (Version 1)
Quarter: 2018Q2

REPORT INFORMATION
  Report Type: Spontaneous
  Country: CA (occurrence: CA)
  Receive Date: 20180612
  Receipt Date: 20180612
  Transmission Date: 20180711
  Serious: Yes (Other)
  Sender: FDA-Public Use
  Company Number: CA-NATCO PHARMA-2018NAT00127

PATIENT
  Age: 39 Year
  Sex: Male

DRUGS (1)
  1. ALPRAZOLAM. [Suspect]
     Active Substance: ALPRAZOLAM
     Dosage: 4 MG, 1X/DAY
     Route: 065

REACTIONS (1)
  - Paramnesia [Recovered/Resolved]
